FAERS Safety Report 7184564-3 (Version None)
Quarter: 2010Q4

REPORT INFORMATION
  Report Type: 
  Country: None (occurrence: None)
  Receive Date: 20101222
  Receipt Date: 20101210
  Transmission Date: 20110411
  Serious: Yes (Hospitalization, Other)
  Sender: FDA-Public Use
  Company Number: US-ELI_LILLY_AND_COMPANY-US201012003050

PATIENT
  Age: 76 Year
  Sex: Female

DRUGS (1)
  1. GEMZAR [Suspect]
     Indication: GALLBLADDER CANCER
     Dosage: 700 MG, UNK
     Dates: start: 20101202

REACTIONS (5)
  - CHILLS [None]
  - HEPATECTOMY [None]
  - LIVER DISORDER [None]
  - LYMPHADENECTOMY [None]
  - SEPSIS [None]
